FAERS Safety Report 4733473-5 (Version None)
Quarter: 2005Q3

REPORT INFORMATION
  Report Type: 
  Country: None (occurrence: None)
  Receive Date: 20050801
  Receipt Date: 20050801
  Transmission Date: 20060218
  Serious: Yes (Hospitalization)
  Sender: FDA-Public Use
  Company Number: None

PATIENT
  Age: 69 Year
  Sex: Male

DRUGS (6)
  1. NPH INSULIN [Suspect]
     Indication: DIABETES MELLITUS INSULIN-DEPENDENT
     Dosage: 10 UNITS BID
     Dates: start: 20050531
  2. EPOGEN [Concomitant]
  3. B12 [Concomitant]
  4. FOLIC ACID [Concomitant]
  5. METFORMIN [Concomitant]
  6. ZOCOR [Concomitant]

REACTIONS (1)
  - HYPOGLYCAEMIA [None]
